FAERS Safety Report 10142498 (Version 1)
Quarter: 2014Q2

REPORT INFORMATION
  Report Type: Spontaneous
  Country: US (occurrence: US)
  Receive Date: 20140430
  Receipt Date: 20140430
  Transmission Date: 20141212
  Serious: No
  Sender: FDA-Public Use
  Company Number: US-009507513-1404USA010303

PATIENT
  Age: 69 Year
  Sex: Female

DRUGS (3)
  1. PROVENTIL [Suspect]
     Indication: CHRONIC OBSTRUCTIVE PULMONARY DISEASE
     Dosage: 2 PUFF, EVERY FOUR TO SIX HOURS
     Dates: start: 20140412
  2. PROVENTIL [Suspect]
     Indication: EMPHYSEMA
  3. SPIRIVA [Concomitant]

REACTIONS (1)
  - Drug ineffective [Unknown]
